FAERS Safety Report 8601124-5 (Version None)
Quarter: 2012Q2

REPORT INFORMATION
  Report Type: 
  Country: None (occurrence: None)
  Receive Date: 20120423
  Receipt Date: 20100412
  Transmission Date: 20120825
  Serious: Yes (Other)
  Sender: FDA-Public Use
  Company Number: PHEH2010US02955

PATIENT
  Age: 56 Year

DRUGS (3)
  1. VITAMIN TAB [Concomitant]
  2. FEMARA [Suspect]
     Indication: BREAST CANCER
     Dosage: 2.5 MG, QD, ORAL
     Route: 048
     Dates: start: 20070816, end: 20100205
  3. LEVOTHYROXINE SODIUM [Concomitant]

REACTIONS (5)
  - PAIN IN EXTREMITY [None]
  - ASPARTATE AMINOTRANSFERASE INCREASED [None]
  - ALANINE AMINOTRANSFERASE INCREASED [None]
  - HYPERCALCAEMIA [None]
  - HEPATIC ENZYME INCREASED [None]
